FAERS Safety Report 4880634-0 (Version None)
Quarter: 2006Q1

REPORT INFORMATION
  Report Type: 
  Country: None (occurrence: None)
  Receive Date: 20060113
  Receipt Date: 20041207
  Transmission Date: 20060701
  Serious: Yes (Hospitalization, Other)
  Sender: FDA-Public Use
  Company Number: US-MERCK-0412USA01037

PATIENT
  Age: 50 Year
  Sex: Female
  Weight: 59 kg

DRUGS (7)
  1. VIOXX [Suspect]
     Indication: OSTEOARTHRITIS
     Route: 048
     Dates: start: 19991001, end: 20030901
  2. ACETAMINOPHEN [Concomitant]
     Route: 065
  3. FAMOTIDINE [Concomitant]
     Route: 065
  4. VIOXX [Suspect]
     Route: 048
     Dates: start: 19991001, end: 20030901
  5. VITAMIN E [Concomitant]
     Route: 065
  6. VITAMINS (UNSPECIFIED) [Concomitant]
     Route: 065
  7. CALCIUM (UNSPECIFIED) [Concomitant]
     Route: 065

REACTIONS (13)
  - ANGINA UNSTABLE [None]
  - BUNION [None]
  - CHEST PAIN [None]
  - COLONIC POLYP [None]
  - CORONARY ARTERY DISEASE [None]
  - DRUG ERUPTION [None]
  - HYPERTENSION [None]
  - MUSCLE TWITCHING [None]
  - MYOCARDIAL INFARCTION [None]
  - MYOCARDIAL ISCHAEMIA [None]
  - NECK PAIN [None]
  - PARAESTHESIA [None]
  - SHOULDER PAIN [None]
